FAERS Safety Report 7952737-5 (Version None)
Quarter: 2011Q4

REPORT INFORMATION
  Report Type: 
  Country: None (occurrence: None)
  Receive Date: 20111201
  Receipt Date: 20111122
  Transmission Date: 20120403
  Serious: Yes (Other)
  Sender: FDA-Public Use
  Company Number: US-ABBOTT-11P-163-0877057-00

PATIENT
  Sex: Male
  Weight: 68.1 kg

DRUGS (1)
  1. HUMIRA [Suspect]
     Indication: CROHN'S DISEASE
     Dates: start: 20110301, end: 20110601

REACTIONS (6)
  - NAUSEA [None]
  - ABDOMINAL PAIN [None]
  - UNEVALUABLE EVENT [None]
  - SMALL INTESTINAL STENOSIS [None]
  - MALAISE [None]
  - INTESTINAL OBSTRUCTION [None]
